FAERS Safety Report 14719684 (Version 2)
Quarter: 2019Q1

REPORT INFORMATION
  Report Type: Spontaneous
  Country: DE (occurrence: DE)
  Receive Date: 20180405
  Receipt Date: 20190228
  Transmission Date: 20190417
  Serious: Yes (Hospitalization, Other)
  Sender: FDA-Public Use
  Company Number: DE-ACCORD-065165

PATIENT
  Age: 73 Year
  Sex: Male

DRUGS (6)
  1. QUETIAPINE/QUETIAPINE FUMARATE [Concomitant]
     Indication: SCHIZOPHRENIA
     Dosage: UP TO 600 MG PER DAY
  2. CLOZAPINE. [Suspect]
     Active Substance: CLOZAPINE
     Indication: SCHIZOPHRENIA
     Dosage: RE-EXPOSURE UP TO 25 MG/D
  3. FINASTERIDE. [Concomitant]
     Active Substance: FINASTERIDE
  4. ACETYLSALICYLIC ACID [Concomitant]
     Active Substance: ASPIRIN
  5. ZOPICLONE [Concomitant]
     Active Substance: ZOPICLONE
  6. TAMSULOSIN/TAMSULOSIN HYDROCHLORIDE [Concomitant]

REACTIONS (4)
  - Somnolence [Unknown]
  - Pericardial effusion [Unknown]
  - Drug level above therapeutic [Unknown]
  - Drug reaction with eosinophilia and systemic symptoms [Recovered/Resolved]
